FAERS Safety Report 6728049-4 (Version None)
Quarter: 2010Q2

REPORT INFORMATION
  Report Type: 
  Country: None (occurrence: None)
  Receive Date: 20100517
  Receipt Date: 20100409
  Transmission Date: 20101027
  Serious: Yes (Death, Life-Threatening, Other)
  Sender: FDA-Public Use
  Company Number: US-BAXTER-2009BH018732

PATIENT
  Age: 77 Year
  Sex: Male
  Weight: 86 kg

DRUGS (12)
  1. HEPARIN SODIUM INJECTION [Suspect]
     Indication: AORTIC VALVE REPLACEMENT
     Route: 065
     Dates: start: 20071126, end: 20071126
  2. HEPARIN SODIUM INJECTION [Suspect]
     Indication: PROPHYLAXIS
     Route: 065
     Dates: start: 20071126, end: 20071126
  3. HEPARIN SODIUM INJECTION [Suspect]
     Route: 058
     Dates: start: 20071127, end: 20071129
  4. HEPARIN SODIUM INJECTION [Suspect]
     Route: 058
     Dates: start: 20071127, end: 20071129
  5. HEPARIN SODIUM INJECTION [Suspect]
     Route: 065
     Dates: start: 20071206, end: 20071206
  6. HEPARIN SODIUM INJECTION [Suspect]
     Route: 065
     Dates: start: 20071206, end: 20071206
  7. ASPIRIN [Concomitant]
     Indication: DRUG USE FOR UNKNOWN INDICATION
     Route: 065
  8. SIMVASTATIN [Concomitant]
     Indication: DRUG USE FOR UNKNOWN INDICATION
     Route: 065
  9. LISINOPRIL [Concomitant]
     Indication: DRUG USE FOR UNKNOWN INDICATION
     Route: 065
  10. TOPROL-XL [Concomitant]
     Indication: DRUG USE FOR UNKNOWN INDICATION
     Route: 065
  11. ASPIRIN [Concomitant]
     Route: 065
  12. COLACE [Concomitant]
     Indication: DRUG USE FOR UNKNOWN INDICATION
     Route: 065

REACTIONS (10)
  - AORTIC STENOSIS [None]
  - AORTIC VALVE REPLACEMENT [None]
  - ATRIAL FIBRILLATION [None]
  - BACTERIAL SEPSIS [None]
  - CARDIAC VALVE ABSCESS [None]
  - CARDIAC VALVE REPLACEMENT COMPLICATION [None]
  - DECREASED APPETITE [None]
  - ENDOCARDITIS [None]
  - HYPOTENSION [None]
  - RESPIRATORY DISTRESS [None]
